FAERS Safety Report 18132217 (Version 2)
Quarter: 2020Q3

REPORT INFORMATION
  Report Type: Report from Study
  Country: US (occurrence: US)
  Receive Date: 20200811
  Receipt Date: 20200820
  Transmission Date: 20201103
  Serious: Yes (Hospitalization)
  Sender: FDA-Public Use
  Company Number: US-HORIZON-TEP-1149-2020

PATIENT
  Age: 74 Year
  Sex: Female

DRUGS (3)
  1. ZOLOFT [Concomitant]
     Active Substance: SERTRALINE HYDROCHLORIDE
     Dosage: 100MG ONCE DAILY; DECREASED TO 50MG DAILY
  2. PROLIA [Concomitant]
     Active Substance: DENOSUMAB
     Dosage: ONCE IN 6 MONTHS
  3. TEPEZZA [Suspect]
     Active Substance: TEPROTUMUMAB-TRBW
     Indication: ENDOCRINE OPHTHALMOPATHY
     Dates: start: 20200320

REACTIONS (10)
  - General physical health deterioration [Unknown]
  - Dizziness [Recovering/Resolving]
  - Blood glucose decreased [Recovered/Resolved]
  - Fall [Unknown]
  - Asthenia [Unknown]
  - Intention tremor [Recovered/Resolved]
  - Gait disturbance [Recovered/Resolved]
  - Anxiety [Unknown]
  - Balance disorder [Recovering/Resolving]
  - Dehydration [Unknown]

NARRATIVE: CASE EVENT DATE: 2020
